FAERS Safety Report 25754790 (Version 1)
Quarter: 2025Q3

REPORT INFORMATION
  Report Type: Spontaneous
  Country: US (occurrence: US)
  Receive Date: 20250903
  Receipt Date: 20250903
  Transmission Date: 20251020
  Serious: No
  Sender: ALEXION PHARMACEUTICALS
  Company Number: US-AstraZeneca-CH-00941229A

PATIENT

DRUGS (1)
  1. SAPHNELO [Suspect]
     Active Substance: ANIFROLUMAB-FNIA
     Route: 065

REACTIONS (6)
  - Pyrexia [Unknown]
  - Nausea [Unknown]
  - Headache [Unknown]
  - Hyperhidrosis [Unknown]
  - Feeling abnormal [Unknown]
  - Feeling cold [Unknown]
